FAERS Safety Report 5898897-1 (Version None)
Quarter: 2008Q3

REPORT INFORMATION
  Report Type: 
  Country: None (occurrence: None)
  Receive Date: 20080925
  Receipt Date: 20080913
  Transmission Date: 20090109
  Serious: Yes (Hospitalization)
  Sender: FDA-Public Use
  Company Number: GB-BAUSCH-2008BL003993

PATIENT
  Age: 56 Year
  Sex: Male

DRUGS (5)
  1. PREDNISOLONE SODIUM PHOSPHATE [Suspect]
     Indication: EYE INFLAMMATION
     Route: 047
     Dates: start: 20080801, end: 20080901
  2. MINIMS CHLORAMPHENICOL 0.5% [Suspect]
     Indication: EYE OPERATION
     Route: 047
     Dates: start: 20080801, end: 20080901
  3. BRIMONIDINE [Suspect]
     Indication: EYE OPERATION
     Route: 047
     Dates: start: 20080717, end: 20080901
  4. TOBRADEX [Suspect]
     Indication: EYE OPERATION
     Route: 047
     Dates: start: 20080717, end: 20080901
  5. TOBRADEX [Suspect]
     Indication: EYE INFLAMMATION
     Route: 047
     Dates: start: 20080717, end: 20080901

REACTIONS (2)
  - ASTHMA [None]
  - HYPERSENSITIVITY [None]
